FAERS Safety Report 18251691 (Version 1)
Quarter: 2020Q3

REPORT INFORMATION
  Report Type: Report from Study
  Country: ZA (occurrence: ZA)
  Receive Date: 20200910
  Receipt Date: 20200910
  Transmission Date: 20201103
  Serious: Yes (Death)
  Sender: FDA-Public Use
  Company Number: ZA-KARYOPHARM-2020KPT000919

PATIENT
  Age: 60 Year
  Sex: Male
  Weight: 92 kg

DRUGS (8)
  1. DEXAMETHASONE. [Concomitant]
     Active Substance: DEXAMETHASONE
     Indication: PLASMA CELL MYELOMA
  2. ZOMETA [Concomitant]
     Active Substance: ZOLEDRONIC ACID
     Indication: PLASMA CELL MYELOMA
     Dosage: 4 MG, MONTHLY
     Route: 042
     Dates: start: 20200716
  3. CANDESARTAN. [Concomitant]
     Active Substance: CANDESARTAN
     Indication: PROPHYLAXIS
     Dosage: 40 UNK, WEEKLY
     Route: 048
     Dates: start: 20200716
  4. SELINEXOR [Suspect]
     Active Substance: SELINEXOR
     Indication: PLASMA CELL MYELOMA
     Dosage: 80 MG, WEEKLY
     Route: 048
     Dates: start: 20200716
  5. GRANICIP [Concomitant]
     Indication: PROPHYLAXIS
     Dosage: 1 MG, 2X/WEEK
     Route: 048
     Dates: start: 20200716
  6. VELCADE [Concomitant]
     Active Substance: BORTEZOMIB
     Indication: PLASMA CELL MYELOMA
     Dosage: 2.6 MG, WEEKLY
     Route: 058
     Dates: start: 20200716
  7. FILGRASTIM [Concomitant]
     Active Substance: FILGRASTIM
     Indication: PROPHYLAXIS
     Dosage: 30 MIU, WEEKLY
     Route: 058
     Dates: start: 20200716
  8. MITIL [Concomitant]
     Active Substance: PROCHLORPERAZINE MALEATE
     Indication: PROPHYLAXIS
     Dosage: 5 MG, BID PRN
     Route: 048
     Dates: start: 20200716

REACTIONS (2)
  - Nausea [Not Recovered/Not Resolved]
  - Plasma cell myeloma [Fatal]

NARRATIVE: CASE EVENT DATE: 20200723
